FAERS Safety Report 7225333-5 (Version None)
Quarter: 2011Q1

REPORT INFORMATION
  Report Type: 
  Country: None (occurrence: None)
  Receive Date: 20110113
  Receipt Date: 20110104
  Transmission Date: 20110831
  Serious: Yes (Hospitalization)
  Sender: FDA-Public Use
  Company Number: US-WATSON-2011-00026

PATIENT
  Age: 43 Year
  Sex: Female
  Weight: 61.678 kg

DRUGS (7)
  1. PHENOBARBITAL [Concomitant]
     Indication: PROPHYLAXIS
     Dosage: 120 MG, DAILY
     Route: 065
     Dates: start: 20101122
  2. AMBIEN [Concomitant]
     Indication: INSOMNIA
     Dosage: 10 MG, DAILY
     Route: 065
     Dates: start: 20101123
  3. FIORICET [Suspect]
     Indication: OVERDOSE
     Dosage: UNK
     Route: 048
  4. RISPERIDONE [Suspect]
     Indication: SCHIZOPHRENIA
     Dosage: UNK
     Route: 030
     Dates: start: 20081023
  5. LAMICTAL [Concomitant]
     Indication: DEPRESSION
     Dosage: 25 MG, DAILY
     Route: 065
     Dates: start: 20101119
  6. SEROQUEL [Concomitant]
     Indication: PSYCHOTIC DISORDER
     Dosage: 200 MG, DAILY
     Route: 065
     Dates: start: 20101122
  7. LITHIUM CARBONATE [Concomitant]
     Indication: AFFECTIVE DISORDER
     Dosage: UNK
     Route: 065

REACTIONS (2)
  - TOXICITY TO VARIOUS AGENTS [None]
  - OVERDOSE [None]
